FAERS Safety Report 5931014-8 (Version None)
Quarter: 2008Q4

REPORT INFORMATION
  Report Type: 
  Country: None (occurrence: None)
  Receive Date: 20081027
  Receipt Date: 20081016
  Transmission Date: 20090506
  Serious: Yes (Hospitalization, Other)
  Sender: FDA-Public Use
  Company Number: US-CELGENEUS-163-21880-08101182

PATIENT
  Sex: Female
  Weight: 48.1 kg

DRUGS (4)
  1. REVLIMID [Suspect]
     Route: 048
     Dates: start: 20050609, end: 20060309
  2. REVLIMID [Suspect]
  3. DEXAMETHASONE [Suspect]
     Route: 048
     Dates: start: 20050609
  4. DEXAMETHASONE [Suspect]
     Route: 048

REACTIONS (1)
  - URETERIC OBSTRUCTION [None]
